FAERS Safety Report 7791692-8 (Version None)
Quarter: 2011Q4

REPORT INFORMATION
  Report Type: 
  Country: None (occurrence: None)
  Receive Date: 20111003
  Receipt Date: 20110923
  Transmission Date: 20120403
  Serious: Yes (Hospitalization)
  Sender: FDA-Public Use
  Company Number: US-JNJFOC-20110410634

PATIENT
  Sex: Female
  Weight: 106.6 kg

DRUGS (7)
  1. LISINOPRIL [Concomitant]
     Indication: HYPERTENSION
     Route: 048
  2. PANTOPRAZOLE [Concomitant]
     Indication: GASTRIC DISORDER
     Route: 048
  3. LORTAB [Concomitant]
     Route: 065
  4. SKELAXIN [Concomitant]
     Route: 065
  5. DURAGESIC-100 [Suspect]
     Indication: PAIN
     Route: 062
  6. DURAGESIC-100 [Suspect]
     Indication: FIBROMYALGIA
     Route: 062
  7. DURAGESIC-100 [Suspect]
     Indication: NERVE INJURY
     Route: 062

REACTIONS (9)
  - DERMATITIS CONTACT [None]
  - PAIN [None]
  - FOOD ALLERGY [None]
  - PRODUCT QUALITY ISSUE [None]
  - DECREASED APPETITE [None]
  - HOSPITALISATION [None]
  - KNEE OPERATION [None]
  - MALAISE [None]
  - WRONG TECHNIQUE IN DRUG USAGE PROCESS [None]
